FAERS Safety Report 4290151-7 (Version None)
Quarter: 2004Q1

REPORT INFORMATION
  Report Type: 
  Country: None (occurrence: None)
  Receive Date: 20040210
  Receipt Date: 20040109
  Transmission Date: 20041129
  Serious: Yes (Other)
  Sender: FDA-Public Use
  Company Number: GB-BRISTOL-MYERS SQUIBB COMPANY-12479911

PATIENT
  Sex: Male

DRUGS (1)
  1. DAIVONEX [Suspect]
     Indication: PSORIASIS

REACTIONS (1)
  - ENDOPHTHALMITIS [None]
